FAERS Safety Report 6098716-7 (Version None)
Quarter: 2009Q1

REPORT INFORMATION
  Report Type: 
  Country: None (occurrence: None)
  Receive Date: 20090302
  Receipt Date: 20090218
  Transmission Date: 20090719
  Serious: Yes (Other)
  Sender: FDA-Public Use
  Company Number: SE-PFIZER INC-2009170834

PATIENT

DRUGS (1)
  1. CYTOTEC [Suspect]
     Indication: ABORTION INDUCED
     Dosage: 0.8 MG, UNK
     Route: 067
     Dates: start: 20090214, end: 20090214

REACTIONS (5)
  - CHILLS [None]
  - OFF LABEL USE [None]
  - PAIN [None]
  - PYREXIA [None]
  - VAGINAL HAEMORRHAGE [None]
